FAERS Safety Report 4866117-2 (Version None)
Quarter: 2005Q4

REPORT INFORMATION
  Report Type: 
  Country: None (occurrence: None)
  Receive Date: 20051227
  Receipt Date: 20050705
  Transmission Date: 20060501
  Serious: Yes (Death, Other)
  Sender: FDA-Public Use
  Company Number: FR-BRISTOL-MYERS SQUIBB COMPANY-13030473

PATIENT
  Age: 42 Year
  Sex: Male
  Weight: 90 kg

DRUGS (6)
  1. GLUCOPHAGE [Suspect]
     Indication: DIABETES MELLITUS NON-INSULIN-DEPENDENT
     Route: 048
  2. APROVEL [Suspect]
     Route: 048
  3. VOLTAREN [Suspect]
     Indication: SHOULDER PAIN
     Route: 048
     Dates: start: 20050620, end: 20050627
  4. TAHOR [Suspect]
  5. DOLIPRANE [Suspect]
     Indication: SHOULDER PAIN
     Route: 048
     Dates: start: 20050620
  6. RULID [Suspect]
     Indication: BRONCHITIS BACTERIAL
     Route: 048
     Dates: start: 20050620

REACTIONS (6)
  - BRONCHITIS BACTERIAL [None]
  - DEHYDRATION [None]
  - HEPATIC CIRRHOSIS [None]
  - LACTIC ACIDOSIS [None]
  - RENAL FAILURE ACUTE [None]
  - SHOCK [None]
